FAERS Safety Report 4917170-9 (Version None)
Quarter: 2006Q1

REPORT INFORMATION
  Report Type: 
  Country: None (occurrence: None)
  Receive Date: 20060221
  Receipt Date: 20060209
  Transmission Date: 20060701
  Serious: Yes (Hospitalization, Other)
  Sender: FDA-Public Use
  Company Number: US-AVENTIS-200611559US

PATIENT
  Sex: Male
  Weight: 83 kg

DRUGS (5)
  1. ARAVA [Suspect]
     Indication: RHEUMATOID ARTHRITIS
  2. REMICADE [Suspect]
     Indication: RHEUMATOID ARTHRITIS
     Dosage: DOSE: 10MG/KG
     Route: 042
     Dates: start: 20010201
  3. METHOTREXATE SODIUM [Suspect]
     Indication: RHEUMATOID ARTHRITIS
  4. PREDNISONE [Concomitant]
  5. GLYBURIDE [Concomitant]
     Dosage: DOSE: UNK

REACTIONS (15)
  - ASTHENIA [None]
  - BLOOD CREATININE INCREASED [None]
  - BLOOD UREA INCREASED [None]
  - CONFUSIONAL STATE [None]
  - CRYPTOCOCCOSIS [None]
  - DIVERTICULUM INTESTINAL [None]
  - DYSPHAGIA [None]
  - LUNG INFILTRATION [None]
  - MOUTH INJURY [None]
  - ORAL CANDIDIASIS [None]
  - PHARYNGOLARYNGEAL PAIN [None]
  - PYREXIA [None]
  - RED BLOOD CELL SEDIMENTATION RATE INCREASED [None]
  - RENAL CYST [None]
  - RENAL MASS [None]
